FAERS Safety Report 18486542 (Version 2)
Quarter: 2020Q4

REPORT INFORMATION
  Report Type: Spontaneous
  Country: GR (occurrence: GR)
  Receive Date: 20201110
  Receipt Date: 20201211
  Transmission Date: 20210114
  Serious: Yes (Hospitalization)
  Sender: FDA-Public Use
  Company Number: GR-ELI_LILLY_AND_COMPANY-GR202011001583

PATIENT
  Age: 48 Year
  Sex: Male

DRUGS (3)
  1. ZYPADHERA [Suspect]
     Active Substance: OLANZAPINE PAMOATE
     Indication: SCHIZOPHRENIA
     Dosage: UNK, MONTHLY (1/M)
     Route: 030
     Dates: start: 2019
  2. ZYPADHERA [Suspect]
     Active Substance: OLANZAPINE PAMOATE
     Indication: SCHIZOPHRENIA
     Dosage: UNK, MONTHLY (1/M)
     Route: 030
     Dates: start: 2019
  3. ZYPADHERA [Suspect]
     Active Substance: OLANZAPINE PAMOATE
     Indication: SCHIZOPHRENIA
     Dosage: UNK, MONTHLY (1/M)
     Route: 030
     Dates: start: 2019

REACTIONS (3)
  - Post-injection delirium sedation syndrome [Recovered/Resolved]
  - Syncope [Unknown]
  - Post-injection delirium sedation syndrome [Unknown]

NARRATIVE: CASE EVENT DATE: 2019
